FAERS Safety Report 5639070-1 (Version None)
Quarter: 2008Q1

REPORT INFORMATION
  Report Type: 
  Country: None (occurrence: None)
  Receive Date: 20080222
  Receipt Date: 20080211
  Transmission Date: 20080703
  Serious: Yes (Hospitalization)
  Sender: FDA-Public Use
  Company Number: 2008013537

PATIENT
  Age: 24 Year
  Sex: Female

DRUGS (3)
  1. DALTEPARIN SODIUM [Suspect]
     Indication: CEREBRAL VENOUS THROMBOSIS
     Dosage: INTRAVENOUS
     Route: 042
  2. PROGESTERONE [Concomitant]
  3. ANTIBIOTICS      (ANTIBIOTICS) [Concomitant]

REACTIONS (3)
  - CENTRAL NERVOUS SYSTEM LESION [None]
  - COMA [None]
  - CONDITION AGGRAVATED [None]
